FAERS Safety Report 10562586 (Version 1)
Quarter: 2014Q4

REPORT INFORMATION
  Report Type: Spontaneous
  Country: US (occurrence: None)
  Receive Date: 20141103
  Receipt Date: 20141103
  Transmission Date: 20150529
  Serious: Yes (Hospitalization, Disabling)
  Sender: FDA-Public Use
  Company Number: None

PATIENT
  Age: 36 Year
  Sex: Female
  Weight: 86.18 kg

DRUGS (1)
  1. SEROQUEL [Suspect]
     Active Substance: QUETIAPINE FUMARATE
     Indication: INSOMNIA
     Dosage: 2 PILLS, AT BEDTIME, TAKEN BY MOUTH
     Dates: start: 20131018, end: 20140207

REACTIONS (3)
  - Hypertension [None]
  - Blood cholesterol increased [None]
  - Type 1 diabetes mellitus [None]

NARRATIVE: CASE EVENT DATE: 20140207
